FAERS Safety Report 4456100-3 (Version None)
Quarter: 2004Q3

REPORT INFORMATION
  Report Type: 
  Country: None (occurrence: None)
  Receive Date: 20040922
  Receipt Date: 20040901
  Transmission Date: 20050211
  Serious: Yes (Death)
  Sender: FDA-Public Use
  Company Number: PHBS2004JP12001

PATIENT
  Age: 68 Year
  Sex: Male

DRUGS (5)
  1. DIOVAN [Suspect]
     Dosage: UNK, UNK
     Route: 048
     Dates: start: 20030727, end: 20030825
  2. SUNRYTHM [Suspect]
     Indication: ATRIAL FIBRILLATION
     Dosage: 75 MG/DAY
     Route: 048
     Dates: start: 20030724, end: 20030825
  3. WARFARIN SODIUM [Concomitant]
     Indication: AORTIC VALVE STENOSIS
     Dosage: 5 MG, UNK
     Route: 048
     Dates: start: 20030724, end: 20030825
  4. BUFFERIN [Concomitant]
     Indication: ANGINA PECTORIS
     Dosage: 81 MG, UNK
     Route: 048
     Dates: start: 20030724, end: 20030825
  5. CARVEDILOL [Concomitant]
     Indication: ANGINA PECTORIS
     Dosage: UNK, UNK
     Route: 048
     Dates: start: 20030724, end: 20030825

REACTIONS (3)
  - CARDIAC ARREST [None]
  - SUDDEN DEATH [None]
  - VENTRICULAR ARRHYTHMIA [None]
